FAERS Safety Report 16315310 (Version 2)
Quarter: 2019Q3

REPORT INFORMATION
  Report Type: Spontaneous
  Country: US (occurrence: US)
  Receive Date: 20190515
  Receipt Date: 20190918
  Transmission Date: 20191004
  Serious: No
  Sender: FDA-Public Use
  Company Number: US-SA-2019SA124106

PATIENT
  Age: 42 Year
  Sex: Male

DRUGS (9)
  1. AUBAGIO [Suspect]
     Active Substance: TERIFLUNOMIDE
     Dosage: 14 MG, QD
     Route: 048
     Dates: start: 20161227
  2. CYCLOBENZAPRINE HCL [Concomitant]
     Active Substance: CYCLOBENZAPRINE HYDROCHLORIDE
  3. TOVIAZ [Concomitant]
     Active Substance: FESOTERODINE FUMARATE
  4. TAMSULOSIN HCL [Concomitant]
     Active Substance: TAMSULOSIN HYDROCHLORIDE
  5. BACLOFEN. [Concomitant]
     Active Substance: BACLOFEN
     Dosage: UNK MG
  6. HYDROCODONE/ACETAMINOPHEN [Concomitant]
     Active Substance: ACETAMINOPHEN\HYDROCODONE
  7. DULOXETINE HCL [Concomitant]
     Active Substance: DULOXETINE HYDROCHLORIDE
  8. BACLOFEN. [Concomitant]
     Active Substance: BACLOFEN
  9. METHADONE HCL [Concomitant]
     Active Substance: METHADONE HYDROCHLORIDE

REACTIONS (1)
  - Product dose omission [Recovered/Resolved]

NARRATIVE: CASE EVENT DATE: 201904
